FAERS Safety Report 7221204-9 (Version None)
Quarter: 2011Q1

REPORT INFORMATION
  Report Type: 
  Country: None (occurrence: None)
  Receive Date: 20110103
  Receipt Date: 20101229
  Transmission Date: 20110831
  Serious: Yes (Death, Other)
  Sender: FDA-Public Use
  Company Number: 2010SP060646

PATIENT
  Age: 33 Year
  Sex: Female

DRUGS (6)
  1. LORAZEPAM [Concomitant]
  2. PREDNISONE [Concomitant]
  3. ALBUTEROL [Concomitant]
  4. SAPHRIS [Suspect]
     Indication: BIPOLAR DISORDER
     Dosage: 5 MG; BID; SL
     Route: 060
     Dates: start: 20101027
  5. LUNESTA [Concomitant]
  6. CEPHALEXIN [Concomitant]

REACTIONS (8)
  - DIZZINESS [None]
  - OEDEMA PERIPHERAL [None]
  - HYPERSENSITIVITY [None]
  - URTICARIA [None]
  - LOSS OF EMPLOYMENT [None]
  - STOMATITIS [None]
  - DRUG ABUSE [None]
  - GAIT DISTURBANCE [None]
